FAERS Safety Report 8827903 (Version 2)
Quarter: 2012Q4

REPORT INFORMATION
  Report Type: 
  Country: IE (occurrence: IE)
  Receive Date: 20121008
  Receipt Date: 20121130
  Transmission Date: 20130627
  Serious: Yes (Hospitalization)
  Sender: FDA-Public Use
  Company Number: PHFR2012IE004905

PATIENT
  Age: 53 Year
  Sex: Male

DRUGS (4)
  1. CLOZARIL [Suspect]
     Indication: SCHIZOPHRENIA
     Route: 048
     Dates: start: 20120827, end: 20120903
  2. ARIPIPRAZOLE [Concomitant]
     Dosage: 15 mg
     Route: 048
     Dates: start: 2010, end: 20120903
  3. OLANZAPINE [Concomitant]
     Indication: SCHIZOPHRENIA
     Dosage: 10 mg, UNK
     Dates: start: 2006
  4. OLANZAPINE [Concomitant]
     Dosage: 20 mg, UNK

REACTIONS (7)
  - Influenza like illness [Recovered/Resolved]
  - Myocarditis [Recovered/Resolved]
  - Troponin increased [Recovered/Resolved]
  - Eosinophil count increased [Recovered/Resolved]
  - Pyrexia [Recovered/Resolved]
  - Tachycardia [Recovered/Resolved]
  - Pneumonia [Recovered/Resolved]
